FAERS Safety Report 17335557 (Version 1)
Quarter: 2020Q1

REPORT INFORMATION
  Report Type: Spontaneous
  Country: US (occurrence: US)
  Receive Date: 20200128
  Receipt Date: 20200128
  Transmission Date: 20200409
  Serious: Yes (Life-Threatening, Hospitalization)
  Sender: FDA-Public Use
  Company Number: US-TEVA-2020-US-1175350

PATIENT
  Age: 43 Year
  Sex: Male

DRUGS (3)
  1. PROPOFOL. [Suspect]
     Active Substance: PROPOFOL
     Dosage: UP TO 80 MICROG/KG/MIN
     Route: 065
  2. PROPOFOL. [Suspect]
     Active Substance: PROPOFOL
     Indication: SEDATION
     Dosage: AT 20-60 MICROG/KG/MIN
     Route: 065
  3. PHENTOLAMINE [Suspect]
     Active Substance: PHENTOLAMINE
     Indication: OVERDOSE
     Route: 065

REACTIONS (6)
  - Distributive shock [Unknown]
  - Overdose [Unknown]
  - Tachycardia [Unknown]
  - Metabolic acidosis [Recovered/Resolved]
  - Propofol infusion syndrome [Recovering/Resolving]
  - Seizure [Unknown]
